FAERS Safety Report 9943910 (Version 2)
Quarter: 2014Q1

REPORT INFORMATION
  Report Type: Report from Study
  Country: US (occurrence: US)
  Receive Date: 20140303
  Receipt Date: 20140303
  Transmission Date: 20141002
  Serious: No
  Sender: FDA-Public Use
  Company Number: US-ABBVIE-12P-163-1010999-00

PATIENT
  Age: 64 Year
  Sex: Female

DRUGS (13)
  1. HUMIRA [Suspect]
     Indication: RHEUMATOID ARTHRITIS
     Route: 058
     Dates: start: 2012
  2. SYNTHROID [Concomitant]
     Indication: HYPOTHYROIDISM
  3. PRANDIN [Concomitant]
     Indication: DIABETES MELLITUS
  4. TRIAMTERENE/HCTZ [Concomitant]
     Indication: HYPERTENSION
     Dosage: 37.5/25MG DAILY
  5. ALLOPURINOL [Concomitant]
     Indication: GOUT
  6. VITAMIN D3 [Concomitant]
     Indication: PRODUCT USED FOR UNKNOWN INDICATION
  7. POTASSIUM [Concomitant]
     Indication: PRODUCT USED FOR UNKNOWN INDICATION
     Dosage: 3 TEASPOON DAILY
  8. CALCITROL [Concomitant]
     Indication: BONE DISORDER
  9. ASPIRIN [Concomitant]
     Indication: PRODUCT USED FOR UNKNOWN INDICATION
  10. VITAMIN B12 [Concomitant]
     Indication: PRODUCT USED FOR UNKNOWN INDICATION
  11. CLARITIN [Concomitant]
     Indication: HYPERSENSITIVITY
  12. TYLENOL 8 HOUR [Concomitant]
     Indication: PAIN
  13. VENTOLIN [Concomitant]
     Indication: ASTHMA
     Dosage: 2 PUFFS AS NEEDED

REACTIONS (8)
  - Incorrect dose administered [Recovering/Resolving]
  - Pulmonary congestion [Unknown]
  - Cough [Unknown]
  - Hypersensitivity [Unknown]
  - Bronchitis [Unknown]
  - Injection site pain [Unknown]
  - Injection site haemorrhage [Unknown]
  - Device malfunction [Unknown]
